FAERS Safety Report 17758695 (Version 1)
Quarter: 2020Q2

REPORT INFORMATION
  Report Type: Spontaneous
  Country: US (occurrence: US)
  Receive Date: 20200507
  Receipt Date: 20200507
  Transmission Date: 20200714
  Serious: Yes (Hospitalization)
  Sender: FDA-Public Use
  Company Number: US-HETERO-HET2020US00474

PATIENT
  Age: 31 Year
  Sex: Female

DRUGS (7)
  1. DULOXETINE. [Suspect]
     Active Substance: DULOXETINE
     Indication: PRODUCT USED FOR UNKNOWN INDICATION
     Dosage: 20 MG, QD EVERY MORNING FOR WEEK
     Route: 065
  2. AMITRIPTYLINE [Interacting]
     Active Substance: AMITRIPTYLINE
     Indication: PRODUCT USED FOR UNKNOWN INDICATION
     Dosage: 10 MG, QD EVENING
     Route: 065
  3. DULOXETINE. [Interacting]
     Active Substance: DULOXETINE
     Dosage: 30 MG
     Route: 048
  4. AMITRIPTYLINE [Interacting]
     Active Substance: AMITRIPTYLINE
     Dosage: 20 MG
     Route: 065
  5. LEVOFLOXACIN. [Concomitant]
     Active Substance: LEVOFLOXACIN
     Indication: PRODUCT USED FOR UNKNOWN INDICATION
     Route: 065
  6. DULOXETINE. [Interacting]
     Active Substance: DULOXETINE
     Dosage: 60 MG, QD
     Route: 048
  7. DULOXETINE. [Interacting]
     Active Substance: DULOXETINE
     Dosage: 40 MG, QD FOR WEEK
     Route: 065

REACTIONS (3)
  - Drug interaction [Unknown]
  - Hypertension [Recovered/Resolved]
  - Autonomic dysreflexia [Recovered/Resolved]
